FAERS Safety Report 6348572-4 (Version None)
Quarter: 2009Q3

REPORT INFORMATION
  Report Type: 
  Country: None (occurrence: None)
  Receive Date: 20090911
  Receipt Date: 20070501
  Transmission Date: 20100115
  Serious: Yes (Hospitalization, Other)
  Sender: FDA-Public Use
  Company Number: US-ASTRAZENECA-2006UW08277

PATIENT
  Age: 21045 Day
  Sex: Female
  Weight: 94.8 kg

DRUGS (9)
  1. SEROQUEL [Suspect]
     Indication: DEPRESSION
     Dosage: 25-50 MG
     Route: 048
     Dates: start: 19990901
  2. SEROQUEL [Suspect]
     Indication: PARANOIA
     Dosage: 25-50 MG
     Route: 048
     Dates: start: 19990901
  3. SEROQUEL [Suspect]
     Indication: PSYCHOTIC DISORDER
     Dosage: 25-50 MG
     Route: 048
     Dates: start: 19990901
  4. SEROQUEL [Suspect]
     Dosage: 100-200MG
     Route: 048
  5. SEROQUEL [Suspect]
     Dosage: 100-200MG
     Route: 048
  6. SEROQUEL [Suspect]
     Dosage: 100-200MG
     Route: 048
  7. STELAZINE [Concomitant]
  8. ZYPREXA/SYMYAX [Concomitant]
  9. WELLBUTRIN [Concomitant]
     Route: 048
     Dates: start: 19990901

REACTIONS (7)
  - BREAST CANCER [None]
  - BREAST DISORDER [None]
  - CEREBROVASCULAR ACCIDENT [None]
  - DIABETES MELLITUS [None]
  - INVESTIGATION [None]
  - MENTAL DISORDER [None]
  - MULTIPLE INJURIES [None]
